FAERS Safety Report 10907230 (Version 1)
Quarter: 2015Q1

REPORT INFORMATION
  Report Type: Spontaneous
  Country: US (occurrence: None)
  Receive Date: 20150309
  Receipt Date: 20150309
  Transmission Date: 20150721
  Serious: Yes (Other)
  Sender: FDA-Public Use
  Company Number: None

PATIENT
  Age: 27 Year
  Sex: Male
  Weight: 65 kg

DRUGS (7)
  1. COLACE [Concomitant]
     Active Substance: DOCUSATE SODIUM
  2. CLOZAPINE 100 MG [Suspect]
     Active Substance: CLOZAPINE
     Indication: SCHIZOPHRENIA
     Dosage: 25MG IN THE MORNING, 75MG QHS
     Route: 048
     Dates: start: 20150210, end: 20150227
  3. QUETIAPINE [Concomitant]
     Active Substance: QUETIAPINE
  4. THIAMINE SUPPLEMENT [Concomitant]
  5. ZOFRAN [Concomitant]
     Active Substance: ONDANSETRON HYDROCHLORIDE
  6. TYLENOL [Concomitant]
     Active Substance: ACETAMINOPHEN
  7. MVI [Concomitant]
     Active Substance: VITAMINS

REACTIONS (5)
  - Pyrexia [None]
  - Myocarditis [None]
  - Asthenia [None]
  - Tachycardia [None]
  - Decreased appetite [None]

NARRATIVE: CASE EVENT DATE: 20150227
